FAERS Safety Report 10482619 (Version 2)
Quarter: 2014Q3

REPORT INFORMATION
  Report Type: Spontaneous
  Country: IT (occurrence: IT)
  Receive Date: 20140929
  Receipt Date: 20140929
  Transmission Date: 20150326
  Serious: Yes (Hospitalization)
  Sender: FDA-Public Use
  Company Number: IT-CELGENE-083-21660-14022822

PATIENT
  Age: 86 Year
  Sex: Male
  Weight: 93 kg

DRUGS (4)
  1. ABRAXANE [Suspect]
     Active Substance: PACLITAXEL
     Indication: PANCREATIC CARCINOMA
     Dosage: 125 MILLIGRAM
     Route: 041
     Dates: start: 20140126, end: 20140126
  2. TIKLID [Concomitant]
     Active Substance: TICLOPIDINE HYDROCHLORIDE
     Indication: ISCHAEMIC HEART DISEASE PROPHYLAXIS
     Route: 048
  3. ABRAXANE [Suspect]
     Active Substance: PACLITAXEL
     Indication: OFF LABEL USE
  4. GEMBIN [Concomitant]
     Active Substance: GEMCITABINE HYDROCHLORIDE
     Indication: PANCREATIC CARCINOMA
     Route: 041
     Dates: start: 20140126, end: 20140126

REACTIONS (1)
  - Ischaemic stroke [Unknown]

NARRATIVE: CASE EVENT DATE: 20140127
